FAERS Safety Report 22530553 (Version 1)
Quarter: 2023Q2

REPORT INFORMATION
  Report Type: Spontaneous
  Country: US (occurrence: None)
  Receive Date: 20230606
  Receipt Date: 20230606
  Transmission Date: 20230722
  Serious: Yes (Other)
  Sender: FDA-Public Use
  Company Number: None

PATIENT
  Age: 64 Year
  Sex: Male
  Weight: 103.5 kg

DRUGS (1)
  1. ELIQUIS [Suspect]
     Active Substance: APIXABAN
     Indication: Deep vein thrombosis
     Dates: start: 20230111, end: 20230412

REACTIONS (5)
  - Drug eruption [None]
  - Hypersensitivity [None]
  - Blister [None]
  - Sunburn [None]
  - Rash [None]

NARRATIVE: CASE EVENT DATE: 20230417
